FAERS Safety Report 13346071 (Version 2)
Quarter: 2017Q1

REPORT INFORMATION
  Report Type: Spontaneous
  Country: US (occurrence: US)
  Receive Date: 20170317
  Receipt Date: 20170322
  Transmission Date: 20170428
  Serious: Yes (Hospitalization)
  Sender: FDA-Public Use
  Company Number: US-SA-2017SA040352

PATIENT
  Age: 73 Year
  Sex: Female

DRUGS (10)
  1. SOLOSTAR [Concomitant]
     Active Substance: DEVICE
     Indication: TYPE 2 DIABETES MELLITUS
     Dates: start: 2016, end: 2016
  2. NOVOLOG [Concomitant]
     Active Substance: INSULIN ASPART
     Dosage: 2-3 UNITS PER MEAL.
  3. TOUJEO [Suspect]
     Active Substance: INSULIN GLARGINE
     Indication: TYPE 2 DIABETES MELLITUS
     Dosage: DOSE:15 UNIT(S)
     Route: 065
     Dates: start: 2016, end: 2016
  4. LEVEMIR [Concomitant]
     Active Substance: INSULIN DETEMIR
     Dosage: 4-6 UNITS
  5. TOUJEO [Suspect]
     Active Substance: INSULIN GLARGINE
     Indication: TYPE 2 DIABETES MELLITUS
     Dosage: DOSE: 3-4 UNITS DAILY
     Route: 065
     Dates: start: 2016, end: 2016
  6. TOUJEO [Suspect]
     Active Substance: INSULIN GLARGINE
     Indication: TYPE 2 DIABETES MELLITUS
     Dosage: DOSE:8 UNIT(S)
     Route: 065
     Dates: start: 2017, end: 2017
  7. LEVEMIR [Concomitant]
     Active Substance: INSULIN DETEMIR
  8. PRANDIN [Concomitant]
     Active Substance: REPAGLINIDE
     Dates: start: 2017, end: 2017
  9. SOLOSTAR [Concomitant]
     Active Substance: DEVICE
     Indication: TYPE 2 DIABETES MELLITUS
     Dates: start: 2016, end: 2016
  10. SOLOSTAR [Concomitant]
     Active Substance: DEVICE
     Indication: TYPE 2 DIABETES MELLITUS
     Dates: start: 2017, end: 2017

REACTIONS (2)
  - Diverticulitis [Unknown]
  - Blood glucose increased [Unknown]
